FAERS Safety Report 6121234-4 (Version None)
Quarter: 2009Q1

REPORT INFORMATION
  Report Type: 
  Country: None (occurrence: None)
  Receive Date: 20090312
  Receipt Date: 20090312
  Transmission Date: 20090719
  Serious: Yes (Life-Threatening)
  Sender: FDA-Public Use
  Company Number: None

PATIENT
  Sex: Female
  Weight: 85.7298 kg

DRUGS (1)
  1. LYRICA [Suspect]
     Indication: BACK PAIN
     Dosage: MINIMUM STRENGTH ONCE A DAY PO
     Route: 048

REACTIONS (3)
  - IRRITABILITY [None]
  - NERVOUS SYSTEM DISORDER [None]
  - SUICIDAL IDEATION [None]
